APPROVED DRUG PRODUCT: LITHIUM CITRATE
Active Ingredient: LITHIUM CITRATE
Strength: EQ 300MG CARBONATE/5ML
Dosage Form/Route: SYRUP;ORAL
Application: A217183 | Product #001 | TE Code: AA
Applicant: SCIEGEN PHARMACEUTICALS INC
Approved: Mar 18, 2024 | RLD: No | RS: No | Type: RX